FAERS Safety Report 5874834-0 (Version None)
Quarter: 2008Q3

REPORT INFORMATION
  Report Type: 
  Country: None (occurrence: None)
  Receive Date: 20080904
  Receipt Date: 20080902
  Transmission Date: 20090109
  Serious: Yes (Hospitalization)
  Sender: FDA-Public Use
  Company Number: SP01934

PATIENT
  Age: 79 Year
  Sex: Female

DRUGS (10)
  1. VISICOL [Suspect]
     Indication: COLONOSCOPY
     Dosage: ORAL
     Route: 048
     Dates: start: 20080529, end: 20080529
  2. VISICOL [Suspect]
     Indication: PREOPERATIVE CARE
     Dosage: ORAL
     Route: 048
     Dates: start: 20080529, end: 20080529
  3. SODIUM PICOSULFATE (SOLUTION) [Concomitant]
  4. AMLODIPINE [Concomitant]
  5. ALFACALCIDOL [Concomitant]
  6. ASPIRIN [Concomitant]
  7. PRAVASTATIN [Concomitant]
  8. OLMESARTAN MEDOXOMIL [Concomitant]
  9. TOFISOPAM [Concomitant]
  10. MECOBALAMIN [Concomitant]

REACTIONS (4)
  - DEHYDRATION [None]
  - HYPOAESTHESIA [None]
  - HYPOKALAEMIA [None]
  - VOMITING [None]
